FAERS Safety Report 15734484 (Version 1)
Quarter: 2018Q4

REPORT INFORMATION
  Report Type: Spontaneous
  Country: FR (occurrence: FR)
  Receive Date: 20181218
  Receipt Date: 20181218
  Transmission Date: 20190205
  Serious: Yes (Hospitalization)
  Sender: FDA-Public Use
  Company Number: PHHY2018FR186147

PATIENT
  Age: 37 Year
  Sex: Female

DRUGS (9)
  1. PANTOPRAZOLE MYLAN [Suspect]
     Active Substance: PANTOPRAZOLE SODIUM
     Indication: GASTROOESOPHAGEAL REFLUX DISEASE
     Dosage: 20 MG, QD
     Route: 048
     Dates: start: 20181030, end: 20181109
  2. PHLOROGLUCINOL ARROW [Suspect]
     Active Substance: PHLOROGLUCINOL
     Indication: GASTROINTESTINAL PAIN
     Dosage: 8 DF, UNK
     Route: 042
  3. SPASFON LYOC [Suspect]
     Active Substance: PHLOROGLUCINOL
     Indication: GASTROINTESTINAL PAIN
     Dosage: 480 MG, QD
     Route: 048
     Dates: start: 20181026, end: 20181030
  4. ATARAX [Suspect]
     Active Substance: HYDROXYZINE HYDROCHLORIDE
     Indication: ANXIETY
     Dosage: 25 MG, QD
     Route: 048
     Dates: start: 20181101, end: 20181102
  5. ONDANSETRON [Suspect]
     Active Substance: ONDANSETRON
     Indication: PROPHYLAXIS OF NAUSEA AND VOMITING
     Dosage: 4 MG, SB
     Route: 042
  6. PRIMPERAN [Suspect]
     Active Substance: METOCLOPRAMIDE HYDROCHLORIDE
     Indication: PROPHYLAXIS OF NAUSEA AND VOMITING
     Dosage: 10 MG, SB
     Route: 048
  7. PIPERACILIN/TAZOBAKTAM MYLAN [Suspect]
     Active Substance: PIPERACILLIN SODIUM\TAZOBACTAM SODIUM
     Indication: URINARY TRACT INFECTION
     Dosage: 4 DF, QD
     Route: 042
     Dates: start: 20181030, end: 20181109
  8. PANTOPRAZOLE SODIUM. [Suspect]
     Active Substance: PANTOPRAZOLE SODIUM
     Indication: GASTROOESOPHAGEAL REFLUX DISEASE
     Dosage: 40 MG, QD
     Route: 042
     Dates: start: 20181030, end: 20181102
  9. NEFOPAM [Suspect]
     Active Substance: NEFOPAM
     Indication: PROCEDURAL PAIN
     Dosage: 120 MG, QD
     Route: 042
     Dates: start: 20181028, end: 20181105

REACTIONS (1)
  - Drug reaction with eosinophilia and systemic symptoms [Recovering/Resolving]

NARRATIVE: CASE EVENT DATE: 20181109
